FAERS Safety Report 16015572 (Version 6)
Quarter: 2019Q2

REPORT INFORMATION
  Report Type: Report from Study
  Country: JP (occurrence: JP)
  Receive Date: 20190228
  Receipt Date: 20190515
  Transmission Date: 20190711
  Serious: Yes (Hospitalization)
  Sender: FDA-Public Use
  Company Number: JP-ROCHE-2268135

PATIENT
  Age: 52 Year
  Sex: Female
  Weight: 56 kg

DRUGS (5)
  1. ATEZOLIZUMAB. [Suspect]
     Active Substance: ATEZOLIZUMAB
     Indication: TRIPLE NEGATIVE BREAST CANCER
     Dosage: FOR 10 DOSES?DOSE OF LAST ATEZOLIZUMAB ADMINISTERED PRIOR TO EVENT ONSET: 1200 MG?DATE OF MOST RECEN
     Route: 041
     Dates: start: 20180824
  2. PACLITAXEL. [Suspect]
     Active Substance: PACLITAXEL
     Indication: TRIPLE NEGATIVE BREAST CANCER
     Dosage: FOR 12 WEEKS?DOSE OF LAST PACLITAXEL ADMINISTERED PRIOR TO EVENT ONSET: 122.4 MG?DATE OF MOST RECENT
     Route: 042
     Dates: start: 20180824
  3. CYCLOPHOSPHAMIDE. [Suspect]
     Active Substance: CYCLOPHOSPHAMIDE
     Indication: TRIPLE NEGATIVE BREAST CANCER
     Dosage: FOR 4 DOSES?DOSE OF LAST CYCLOPHOSPHAMIDE ADMINISTERED PRIOR TO EVENT ONSET: 918 MG?DATE OF MOST REC
     Route: 042
     Dates: start: 20181130
  4. PEGFILGRASTIM [Suspect]
     Active Substance: PEGFILGRASTIM
     Indication: TRIPLE NEGATIVE BREAST CANCER
     Dosage: STARTED ON 02/DEC/2018 AT 10:11?SUBSEQUENT DOSES ON 23/DEC/2018 AND 06/JAN/2019?MOST RECENT DOSE PRI
     Route: 058
     Dates: start: 20181202
  5. DOXORUBICIN [Suspect]
     Active Substance: DOXORUBICIN
     Indication: TRIPLE NEGATIVE BREAST CANCER
     Dosage: FOR A TOTAL OF 4 DOSES?DOSE OF LAST DOXORUBICIN ADMINISTERED PRIOR TO EVENT ONSET: 73.44 MG?DATE OF
     Route: 042
     Dates: start: 20181130

REACTIONS (1)
  - Hypopituitarism [Not Recovered/Not Resolved]

NARRATIVE: CASE EVENT DATE: 20190215
